FAERS Safety Report 9788918 (Version 2)
Quarter: 2013Q4

REPORT INFORMATION
  Report Type: Spontaneous
  Country: NL (occurrence: NL)
  Receive Date: 20131230
  Receipt Date: 20131230
  Transmission Date: 20140711
  Serious: Yes (Hospitalization)
  Sender: FDA-Public Use
  Company Number: NL-UCBSA-095815

PATIENT
  Age: 37 Year
  Sex: Female
  Weight: 80 kg

DRUGS (4)
  1. CIMZIA [Suspect]
     Indication: PSORIATIC ARTHROPATHY
     Dosage: LOADING DOSE + 1X/2 WEEKS
     Route: 058
     Dates: start: 20130821
  2. FOLIC ACID [Concomitant]
     Route: 048
  3. SEROXAT [Concomitant]
     Indication: DEPRESSION
     Route: 048
  4. VITAMIN D [Concomitant]
     Route: 048

REACTIONS (2)
  - Gestational diabetes [Unknown]
  - Exposure during pregnancy [Recovered/Resolved]
